FAERS Safety Report 21873759 (Version 2)
Quarter: 2023Q1

REPORT INFORMATION
  Report Type: Report from Study
  Country: US (occurrence: US)
  Receive Date: 20230117
  Receipt Date: 20230120
  Transmission Date: 20230418
  Serious: Yes (Hospitalization)
  Sender: FDA-Public Use
  Company Number: US-VERTEX PHARMACEUTICALS-2023-000689

PATIENT
  Age: 44 Year
  Sex: Female

DRUGS (12)
  1. TRIKAFTA [Suspect]
     Active Substance: ELEXACAFTOR\IVACAFTOR\TEZACAFTOR
     Indication: Cystic fibrosis
     Dosage: TWO TABLETS AM AND ONE TABLET PM
     Route: 048
     Dates: start: 2019
  2. LANTUS [Concomitant]
     Active Substance: INSULIN GLARGINE
  3. LEVOFLOXACIN [Concomitant]
     Active Substance: LEVOFLOXACIN
  4. VITAMIN D [Concomitant]
     Active Substance: VITAMIN D NOS
  5. URSODIOL [Concomitant]
     Active Substance: URSODIOL
  6. SACCHAROMYCES CEREVISIAE [Concomitant]
     Active Substance: SACCHAROMYCES CEREVISIAE
  7. VITAMIN K [Concomitant]
     Active Substance: PHYTONADIONE
  8. CALCIUM [Concomitant]
     Active Substance: CALCIUM
  9. FISH OIL [Concomitant]
     Active Substance: FISH OIL
  10. INSULIN ASPART [Concomitant]
     Active Substance: INSULIN ASPART
  11. BUDESONIDE [Concomitant]
     Active Substance: BUDESONIDE
     Dosage: NEBS
     Route: 055
  12. MIRALAX [Concomitant]
     Active Substance: POLYETHYLENE GLYCOL 3350

REACTIONS (1)
  - Infection [Recovered/Resolved]

NARRATIVE: CASE EVENT DATE: 20230108
